FAERS Safety Report 20493174 (Version 2)
Quarter: 2022Q2

REPORT INFORMATION
  Report Type: Spontaneous
  Country: US (occurrence: US)
  Receive Date: 20220220
  Receipt Date: 20220411
  Transmission Date: 20220721
  Serious: No
  Sender: FDA-Public Use
  Company Number: US-SA-SAC20220214000833

PATIENT
  Age: 27 Year
  Sex: Male

DRUGS (1)
  1. DUPIXENT [Suspect]
     Active Substance: DUPILUMAB
     Indication: Psoriasis
     Dosage: 300 MG, QOW
     Route: 058
     Dates: start: 202201

REACTIONS (5)
  - Swelling of eyelid [Unknown]
  - Injection site bruising [Unknown]
  - Product use in unapproved indication [Unknown]
  - Eyelid thickening [Unknown]
  - Eyelid infection [Unknown]

NARRATIVE: CASE EVENT DATE: 20220101
